FAERS Safety Report 7097476-0 (Version None)
Quarter: 2010Q4

REPORT INFORMATION
  Report Type: 
  Country: None (occurrence: None)
  Receive Date: 20101111
  Receipt Date: 20100514
  Transmission Date: 20110411
  Serious: No
  Sender: FDA-Public Use
  Company Number: PHEH2010US03870

PATIENT

DRUGS (1)
  1. TASIGNA [Suspect]

REACTIONS (1)
  - DRUG DOSE OMISSION [None]
